FAERS Safety Report 9857866 (Version 1)
Quarter: 2014Q1

REPORT INFORMATION
  Report Type: Report from Study
  Country: CA (occurrence: CA)
  Receive Date: 20140131
  Receipt Date: 20140131
  Transmission Date: 20141002
  Serious: Yes (Hospitalization)
  Sender: FDA-Public Use
  Company Number: CA-ROCHE-1342479

PATIENT
  Age: 57 Year
  Sex: Female

DRUGS (1)
  1. LUCENTIS [Suspect]
     Indication: DIABETIC RETINAL OEDEMA
     Route: 050

REACTIONS (2)
  - Fall [Unknown]
  - Lower limb fracture [Recovering/Resolving]
